FAERS Safety Report 4745488-1 (Version None)
Quarter: 2005Q3

REPORT INFORMATION
  Report Type: 
  Country: None (occurrence: None)
  Receive Date: 20050812
  Receipt Date: 20050726
  Transmission Date: 20060218
  Serious: Yes (Hospitalization, Other)
  Sender: FDA-Public Use
  Company Number: 2005VX000444

PATIENT
  Age: 50 Year
  Sex: Female

DRUGS (8)
  1. PERMAX [Suspect]
     Indication: PARKINSON'S DISEASE
     Dosage: .05 MG; 3 TIMES A DAY;SEE IMAGE
     Dates: start: 20010101
  2. PERMAX [Suspect]
     Indication: PARKINSON'S DISEASE
     Dosage: .05 MG; 3 TIMES A DAY;SEE IMAGE
     Dates: start: 20011126
  3. PERMAX [Suspect]
     Indication: PARKINSON'S DISEASE
     Dosage: .05 MG; 3 TIMES A DAY;SEE IMAGE
     Dates: start: 20011227
  4. PERMAX [Suspect]
     Indication: PARKINSON'S DISEASE
     Dosage: .05 MG; 3 TIMES A DAY;SEE IMAGE
     Dates: start: 20020111
  5. PERMAX [Suspect]
     Indication: PARKINSON'S DISEASE
     Dosage: .05 MG; 3 TIMES A DAY;SEE IMAGE
     Dates: start: 20020124
  6. ...... [Concomitant]
  7. SINEMET [Concomitant]
  8. TIGAN [Concomitant]

REACTIONS (26)
  - AORTIC VALVE INCOMPETENCE [None]
  - AORTIC VALVE SCLEROSIS [None]
  - AORTIC VALVE STENOSIS [None]
  - ATRIAL FIBRILLATION [None]
  - ATRIOVENTRICULAR BLOCK COMPLETE [None]
  - BONE DENSITY DECREASED [None]
  - CARDIAC FAILURE [None]
  - CARDIOMEGALY [None]
  - CARDIOMYOPATHY [None]
  - COR PULMONALE CHRONIC [None]
  - DENTAL TREATMENT [None]
  - DYSKINESIA [None]
  - MITRAL VALVE INCOMPETENCE [None]
  - MUSCLE SPASMS [None]
  - NAUSEA [None]
  - ORTHOPNOEA [None]
  - PALPITATIONS [None]
  - PERICARDIAL EFFUSION [None]
  - PLEURAL EFFUSION [None]
  - PULMONARY HYPERTENSION [None]
  - PULMONARY OEDEMA [None]
  - SYNCOPE [None]
  - TACHYCARDIA [None]
  - TRICUSPID VALVE INCOMPETENCE [None]
  - VENTRICULAR DYSFUNCTION [None]
  - WEIGHT INCREASED [None]
